FAERS Safety Report 11089612 (Version 2)
Quarter: 2015Q2

REPORT INFORMATION
  Report Type: Spontaneous
  Country: US (occurrence: US)
  Receive Date: 20150505
  Receipt Date: 20150513
  Transmission Date: 20150821
  Serious: No
  Sender: FDA-Public Use
  Company Number: US-BIOGENIDEC-2015BI058596

PATIENT
  Age: 46 Year
  Sex: Female

DRUGS (2)
  1. TYSABRI [Suspect]
     Active Substance: NATALIZUMAB
     Indication: MULTIPLE SCLEROSIS
     Route: 042
  2. TYSABRI [Suspect]
     Active Substance: NATALIZUMAB
     Indication: MULTIPLE SCLEROSIS
     Route: 042
     Dates: start: 20091023

REACTIONS (7)
  - Speech disorder [Unknown]
  - Rash [Unknown]
  - VIIth nerve paralysis [Not Recovered/Not Resolved]
  - Blister [Not Recovered/Not Resolved]
  - Herpes zoster [Unknown]
  - Confusional state [Unknown]
  - Cranial nerve disorder [Unknown]

NARRATIVE: CASE EVENT DATE: 20150423
